FAERS Safety Report 4631474-9 (Version None)
Quarter: 2005Q2

REPORT INFORMATION
  Report Type: 
  Country: None (occurrence: None)
  Receive Date: 20050407
  Receipt Date: 20050330
  Transmission Date: 20051028
  Serious: Yes (Hospitalization)
  Sender: FDA-Public Use
  Company Number: HQWYE649504APR05

PATIENT

DRUGS (2)
  1. EFFEXOR [Suspect]
     Dosage: SEE IMAGE
     Route: 048
  2. ZYPREXA [Suspect]

REACTIONS (2)
  - AGGRESSION [None]
  - SUICIDAL IDEATION [None]
